FAERS Safety Report 5390965-6 (Version None)
Quarter: 2007Q3

REPORT INFORMATION
  Report Type: 
  Country: None (occurrence: None)
  Receive Date: 20070716
  Receipt Date: 20070413
  Transmission Date: 20080115
  Serious: Yes (Other)
  Sender: FDA-Public Use
  Company Number: MPS1-10684

PATIENT
  Age: 14 Year
  Sex: Male
  Weight: 27.1 kg

DRUGS (4)
  1. ALDURAZYME [Suspect]
     Indication: MUCOPOLYSACCHARIDOSIS I
     Dosage: 15.7 MG QWK IV
     Route: 042
  2. ALBUTEROL PUMP [Concomitant]
  3. EAR DROPS [Concomitant]
  4. GI MEDICATIONS [Concomitant]

REACTIONS (2)
  - BLOOD PRESSURE INCREASED [None]
  - SUBCLAVIAN VEIN THROMBOSIS [None]
